FAERS Safety Report 8533558-1 (Version None)
Quarter: 2012Q3

REPORT INFORMATION
  Report Type: 
  Country: None (occurrence: None)
  Receive Date: 20120717
  Receipt Date: 20120717
  Transmission Date: 20120928
  Serious: Yes (Death)
  Sender: FDA-Public Use
  Company Number: None

PATIENT
  Sex: Female
  Weight: 77.8 kg

DRUGS (9)
  1. CITALOPRAM HYDROBROMIDE [Concomitant]
  2. LEFLUNOMIDE [Concomitant]
  3. GABAPENTIN [Concomitant]
  4. POTASSIUM CHLORIDE [Concomitant]
  5. OXYBUTYNIN [Concomitant]
  6. OMEPRAZOLE [Concomitant]
  7. ACTEMRA [Suspect]
     Indication: RHEUMATOID ARTHRITIS
  8. BISOPROLOL FUMARATE [Concomitant]
  9. ZOLPIDEM TARTRATE [Concomitant]

REACTIONS (10)
  - AORTIC VALVE DISEASE [None]
  - SEPSIS [None]
  - ESCHERICHIA TEST POSITIVE [None]
  - GENERAL PHYSICAL HEALTH DETERIORATION [None]
  - ACIDOSIS [None]
  - URINARY TRACT INFECTION [None]
  - PATHOGEN RESISTANCE [None]
  - RESPIRATORY FAILURE [None]
  - CANDIDA TEST POSITIVE [None]
  - CARDIAC MURMUR [None]
